FAERS Safety Report 24534861 (Version 1)
Quarter: 2024Q4

REPORT INFORMATION
  Report Type: Report from Study
  Country: US (occurrence: US)
  Receive Date: 20241022
  Receipt Date: 20241022
  Transmission Date: 20250114
  Serious: Yes (Other)
  Sender: JAZZ
  Company Number: US-JAZZ PHARMACEUTICALS-2023-US-020874

PATIENT
  Age: 59 Year
  Sex: Female

DRUGS (17)
  1. XYWAV [Suspect]
     Active Substance: CALCIUM OXYBATE\MAGNESIUM OXYBATE\POTASSIUM OXYBATE\SODIUM OXYBATE
     Indication: Cataplexy
     Dosage: 4 GRAM, BID
  2. XYWAV [Suspect]
     Active Substance: CALCIUM OXYBATE\MAGNESIUM OXYBATE\POTASSIUM OXYBATE\SODIUM OXYBATE
     Indication: Narcolepsy
     Dosage: 3.75 GRAM, BID
  3. XYWAV [Suspect]
     Active Substance: CALCIUM OXYBATE\MAGNESIUM OXYBATE\POTASSIUM OXYBATE\SODIUM OXYBATE
     Indication: Somnolence
     Dosage: 3.5 GRAM, BID
     Route: 048
  4. XYWAV [Suspect]
     Active Substance: CALCIUM OXYBATE\MAGNESIUM OXYBATE\POTASSIUM OXYBATE\SODIUM OXYBATE
     Dosage: UNK
  5. IRON [Suspect]
     Active Substance: IRON
     Indication: Anaemia
     Dosage: UNK
     Dates: start: 20231222
  6. VENLAFAXINE HCL [Concomitant]
     Active Substance: VENLAFAXINE HYDROCHLORIDE
     Indication: Product used for unknown indication
     Dosage: 75 MG AND IS DOWN TO 37.5
     Dates: start: 20231226
  7. DICLOFENAC [Concomitant]
     Active Substance: DICLOFENAC
     Indication: Pain
     Dosage: UNK
     Dates: start: 20231220
  8. LIDOCAINE [Concomitant]
     Active Substance: LIDOCAINE
     Indication: Product used for unknown indication
     Dosage: UNK
     Dates: start: 20231220
  9. AMBIEN [Concomitant]
     Active Substance: ZOLPIDEM TARTRATE
     Indication: Product used for unknown indication
     Dosage: UNK
  10. MELATONIN [Concomitant]
     Active Substance: MELATONIN
     Indication: Product used for unknown indication
     Dosage: UNK
     Dates: start: 20150101
  11. LEVOCETIRIZINE [Concomitant]
     Active Substance: LEVOCETIRIZINE
     Indication: Hypersensitivity
     Dosage: UNK
     Dates: start: 20240222
  12. SINGULAIR [Concomitant]
     Active Substance: MONTELUKAST SODIUM
     Indication: Hypersensitivity
     Dosage: UNK
  13. ARTIFICIAL TEAR [HYPROMELLOSE] [Concomitant]
     Indication: Dry eye
     Dosage: UNK
  14. IBUPROFEN [Concomitant]
     Active Substance: IBUPROFEN
     Indication: Pain
     Dosage: UNK
     Dates: start: 20240131
  15. TYLENOL [Concomitant]
     Active Substance: ACETAMINOPHEN
     Indication: Pain
     Dosage: UNK
  16. NAPROXEN [Concomitant]
     Active Substance: NAPROXEN
     Indication: Pain
     Dosage: UNK
     Dates: start: 20240131
  17. MAXALT [Concomitant]
     Active Substance: RIZATRIPTAN BENZOATE
     Indication: Migraine
     Dosage: UNK

REACTIONS (19)
  - Pulmonary embolism [Not Recovered/Not Resolved]
  - Glomerular filtration rate decreased [Recovered/Resolved]
  - Uvulitis [Unknown]
  - Feeling jittery [Recovering/Resolving]
  - Tremor [Unknown]
  - Snoring [Unknown]
  - Condition aggravated [Unknown]
  - Anaemia [Unknown]
  - Dyspnoea [Not Recovered/Not Resolved]
  - Dry mouth [Unknown]
  - Nausea [Recovered/Resolved]
  - Dysphagia [Unknown]
  - Throat tightness [Unknown]
  - Sleep apnoea syndrome [Not Recovered/Not Resolved]
  - Thirst [Unknown]
  - Eructation [Not Recovered/Not Resolved]
  - Intentional product use issue [Unknown]
  - Product administration interrupted [Unknown]
  - Drug ineffective [Unknown]

NARRATIVE: CASE EVENT DATE: 20231214
